FAERS Safety Report 15882326 (Version 1)
Quarter: 2019Q1

REPORT INFORMATION
  Report Type: Spontaneous
  Country: US (occurrence: US)
  Receive Date: 20190128
  Receipt Date: 20190128
  Transmission Date: 20190417
  Serious: No
  Sender: FDA-Public Use
  Company Number: US-AMGEN-USASP2019012265

PATIENT
  Age: 57 Year
  Sex: Female

DRUGS (1)
  1. ENBREL [Suspect]
     Active Substance: ETANERCEPT
     Indication: PSORIATIC ARTHROPATHY
     Dosage: 50 MG, QWK
     Route: 065
     Dates: start: 20190118

REACTIONS (4)
  - Paranasal sinus hypersecretion [Unknown]
  - Ear infection [Recovering/Resolving]
  - Lacrimation increased [Unknown]
  - Ear haemorrhage [Recovered/Resolved]

NARRATIVE: CASE EVENT DATE: 201901
